FAERS Safety Report 8572269-3 (Version None)
Quarter: 2012Q3

REPORT INFORMATION
  Report Type: 
  Country: None (occurrence: None)
  Receive Date: 20120806
  Receipt Date: 20120730
  Transmission Date: 20120928
  Serious: Yes (Other)
  Sender: FDA-Public Use
  Company Number: AU-PURDUE-USA-2012-0090871

PATIENT
  Age: 52 Year
  Sex: Male

DRUGS (2)
  1. OXYCODONE HCL [Suspect]
     Indication: ANALGESIC THERAPY
     Dosage: UNK
     Dates: start: 20000101
  2. OXYCODONE HCL [Suspect]
     Indication: BACK INJURY

REACTIONS (10)
  - SUICIDAL IDEATION [None]
  - TREMOR [None]
  - THINKING ABNORMAL [None]
  - FEELING HOT [None]
  - UNEVALUABLE EVENT [None]
  - DRUG DEPENDENCE [None]
  - NAUSEA [None]
  - SALIVARY HYPERSECRETION [None]
  - HYPERHIDROSIS [None]
  - WEIGHT INCREASED [None]
